FAERS Safety Report 4359351-1 (Version None)
Quarter: 2004Q2

REPORT INFORMATION
  Report Type: 
  Country: None (occurrence: None)
  Receive Date: 20040512
  Receipt Date: 20040428
  Transmission Date: 20050107
  Serious: Yes (Hospitalization)
  Sender: FDA-Public Use
  Company Number: US_0404102250

PATIENT
  Age: 79 Year
  Sex: Male
  Weight: 74 kg

DRUGS (4)
  1. CIALIS [Suspect]
     Indication: ERECTILE DYSFUNCTION
     Dosage: 20 MG/1 DAY
     Dates: start: 20040101
  2. QUINIDINE SULFATE [Concomitant]
  3. AMLODIPINE BESYLATE [Concomitant]
  4. ENALAPRIL MALEATE [Concomitant]

REACTIONS (5)
  - DIZZINESS [None]
  - HYPOTENSION [None]
  - MALAISE [None]
  - SKIN DISCOLOURATION [None]
  - VISUAL ACUITY REDUCED [None]
